FAERS Safety Report 4986890-2 (Version None)
Quarter: 2006Q2

REPORT INFORMATION
  Report Type: 
  Country: None (occurrence: None)
  Receive Date: 20060501
  Receipt Date: 20060419
  Transmission Date: 20061013
  Serious: Yes (Hospitalization)
  Sender: FDA-Public Use
  Company Number: JP-JNJFOC-20060401764

PATIENT
  Sex: Male
  Weight: 62 kg

DRUGS (7)
  1. REMICADE [Suspect]
     Indication: CROHN'S DISEASE
     Route: 042
  2. PREDONINE [Concomitant]
     Dosage: DOSE ORAL 40-2.5MG
  3. PREDONINE [Concomitant]
     Indication: CROHN'S DISEASE
     Dosage: DOSE INTRAVENOUS 40-2.5MG
  4. CIPROXAN [Concomitant]
     Dosage: ROUTE OF ADMINISTRATION DR
  5. CIPROXAN [Concomitant]
     Indication: INFECTION
     Dosage: ROUTE OF ADMINISTRATION DR
  6. RESTAMIN [Concomitant]
     Indication: PROPHYLAXIS
  7. HYDROCORTONE [Concomitant]
     Indication: PROPHYLAXIS
     Route: 042

REACTIONS (1)
  - DIFFUSE LARGE B-CELL LYMPHOMA STAGE IV [None]
